FAERS Safety Report 9748518 (Version 1)
Quarter: 2013Q4

REPORT INFORMATION
  Report Type: Spontaneous
  Country: GB (occurrence: None)
  Receive Date: 20131209
  Receipt Date: 20131209
  Transmission Date: 20140711
  Serious: Yes (Death)
  Sender: FDA-Public Use
  Company Number: CL-541-2013

PATIENT
  Age: 86 Year
  Sex: Female
  Weight: 70 kg

DRUGS (1)
  1. METRONIDAZOLE [Suspect]
     Indication: ABDOMINAL INFECTION
     Route: 042
     Dates: start: 20131025, end: 20131025

REACTIONS (3)
  - Incorrect route of drug administration [None]
  - Anaphylactic shock [None]
  - Lactic acidosis [None]
